FAERS Safety Report 18054872 (Version 1)
Quarter: 2020Q3

REPORT INFORMATION
  Report Type: Spontaneous
  Country: US (occurrence: US)
  Receive Date: 20200721
  Receipt Date: 20200721
  Transmission Date: 20201103
  Serious: Yes (Hospitalization)
  Sender: FDA-Public Use
  Company Number: None

PATIENT
  Age: 71 Year
  Sex: Male
  Weight: 105 kg

DRUGS (1)
  1. TACROLIMUS. [Suspect]
     Active Substance: TACROLIMUS
     Indication: RENAL TRANSPLANT
     Route: 048
     Dates: start: 20070524

REACTIONS (6)
  - Diarrhoea [None]
  - Diabetic ketoacidosis [None]
  - Blood urea increased [None]
  - Pain in extremity [None]
  - Blood creatine increased [None]
  - Hyperglycaemic hyperosmolar nonketotic syndrome [None]
